FAERS Safety Report 8621791-X (Version None)
Quarter: 2012Q3

REPORT INFORMATION
  Report Type: 
  Country: None (occurrence: None)
  Receive Date: 20120821
  Receipt Date: 20120821
  Transmission Date: 20120928
  Serious: Yes (Other)
  Sender: FDA-Public Use
  Company Number: None

PATIENT
  Age: 29 Year
  Sex: Female
  Weight: 63.5036 kg

DRUGS (2)
  1. FLUOXETINE [Suspect]
     Indication: BIPOLAR DISORDER
     Dosage: 40MG DAILY BUCCAL
     Route: 002
     Dates: start: 20120602, end: 20120816
  2. FLUOXETINE [Suspect]
     Indication: AGORAPHOBIA
     Dosage: 40MG DAILY BUCCAL
     Route: 002
     Dates: start: 20120602, end: 20120816

REACTIONS (4)
  - RASH GENERALISED [None]
  - TREMOR [None]
  - DYSPNOEA [None]
  - CONFUSIONAL STATE [None]
